FAERS Safety Report 4276366-2 (Version None)
Quarter: 2004Q1

REPORT INFORMATION
  Report Type: 
  Country: None (occurrence: None)
  Receive Date: 20040120
  Receipt Date: 20040120
  Transmission Date: 20041129
  Serious: Yes (Other)
  Sender: FDA-Public Use
  Company Number: None

PATIENT
  Age: 54 Year
  Sex: Male
  Weight: 90.2658 kg

DRUGS (1)
  1. FLUOROURACIL [Suspect]

REACTIONS (2)
  - DEVICE FAILURE [None]
  - MEDICATION ERROR [None]
